FAERS Safety Report 26129816 (Version 1)
Quarter: 2025Q4

REPORT INFORMATION
  Report Type: Spontaneous
  Country: US (occurrence: US)
  Receive Date: 20251208
  Receipt Date: 20251208
  Transmission Date: 20260117
  Serious: Yes (Hospitalization)
  Sender: HIKMA
  Company Number: US-HIKMA PHARMACEUTICALS-US-H14001-25-12732

PATIENT
  Age: 10 Month
  Sex: Female

DRUGS (3)
  1. CARBOPLATIN [Suspect]
     Active Substance: CARBOPLATIN
     Indication: Retinoblastoma
     Dosage: 30 MILLIGRAM (20 ML), RIGHT EYE, SIX CYCLE
     Route: 047
  2. MELPHALAN [Suspect]
     Active Substance: MELPHALAN
     Indication: Retinoblastoma
     Dosage: 4 MILLIGRAM (20 ML), RIGHT EYE, SIX CYCLE
     Route: 047
  3. TOPOTECAN [Suspect]
     Active Substance: TOPOTECAN HYDROCHLORIDE
     Indication: Retinoblastoma
     Dosage: 0.3 MILLIGRAM (20 ML), RIGHT EYE, SIX CYCLE
     Route: 047

REACTIONS (4)
  - Bowel movement irregularity [Unknown]
  - Fatigue [Unknown]
  - Vomiting [Unknown]
  - Nausea [Unknown]
